FAERS Safety Report 14179284 (Version 1)
Quarter: 2017Q4

REPORT INFORMATION
  Report Type: Spontaneous
  Country: MT (occurrence: MT)
  Receive Date: 20171110
  Receipt Date: 20171110
  Transmission Date: 20180321
  Serious: Yes (Other)
  Sender: FDA-Public Use
  Company Number: MT-JUBILANT CADISTA PHARMACEUTICALS-2017JUB00378

PATIENT
  Age: 91 Year
  Sex: Female

DRUGS (2)
  1. QUETIAPINE. [Suspect]
     Active Substance: QUETIAPINE
     Dosage: 25 MG, UNK
     Route: 065
  2. QUETIAPINE. [Suspect]
     Active Substance: QUETIAPINE
     Dosage: 50 MG, UNK
     Route: 065

REACTIONS (4)
  - Retinal haemorrhage [Unknown]
  - Intravascular haemolysis [Recovered/Resolved]
  - Neuroleptic malignant syndrome [Recovering/Resolving]
  - Accelerated hypertension [Recovered/Resolved]
